FAERS Safety Report 18419025 (Version 1)
Quarter: 2020Q4

REPORT INFORMATION
  Report Type: Spontaneous
  Country: US (occurrence: US)
  Receive Date: 20201022
  Receipt Date: 20201022
  Transmission Date: 20210114
  Serious: No
  Sender: FDA-Public Use
  Company Number: None

PATIENT
  Sex: Female
  Weight: 108.41 kg

DRUGS (1)
  1. NEXPLANON [Suspect]
     Active Substance: ETONOGESTREL

REACTIONS (5)
  - Depression [None]
  - Feeling abnormal [None]
  - Urticaria [None]
  - Weight increased [None]
  - Suicidal ideation [None]

NARRATIVE: CASE EVENT DATE: 20161006
